FAERS Safety Report 7957164-2 (Version None)
Quarter: 2011Q4

REPORT INFORMATION
  Report Type: 
  Country: None (occurrence: None)
  Receive Date: 20111205
  Receipt Date: 20111125
  Transmission Date: 20120403
  Serious: Yes (Life-Threatening)
  Sender: FDA-Public Use
  Company Number: FR-GENZYME-MOZO-1000601

PATIENT
  Sex: Female

DRUGS (3)
  1. GRANOCYTE [Suspect]
     Indication: HAEMATOPOIETIC STEM CELL MOBILISATION
     Dosage: 850 MCG, UNK
     Route: 058
     Dates: start: 20110612, end: 20110618
  2. PLERIXAFOR [Suspect]
     Indication: HAEMATOPOIETIC STEM CELL MOBILISATION
     Dosage: UNK
     Route: 058
     Dates: start: 20110613, end: 20110618
  3. PLERIXAFOR [Suspect]
     Indication: MULTIPLE MYELOMA

REACTIONS (2)
  - MYELODYSPLASTIC SYNDROME [None]
  - THERAPEUTIC RESPONSE DECREASED [None]
